FAERS Safety Report 20646207 (Version 3)
Quarter: 2022Q2

REPORT INFORMATION
  Report Type: Spontaneous
  Country: DE (occurrence: DE)
  Receive Date: 20220329
  Receipt Date: 20220620
  Transmission Date: 20220721
  Serious: Yes (Death, Hospitalization, Other)
  Sender: FDA-Public Use
  Company Number: DE-BoehringerIngelheim-2022-BI-155208

PATIENT
  Age: 69 Year
  Sex: Male
  Weight: 86 kg

DRUGS (3)
  1. DOCETAXEL [Suspect]
     Active Substance: DOCETAXEL
     Indication: Lung adenocarcinoma
     Dosage: 75 MILLIGRAM/SQ. METER, ONCE A DAY (FORMULATION- LIQUID, DAILY DOSE- 75 MG/M2 BSA)
     Route: 065
     Dates: start: 20220106
  2. NINTEDANIB [Suspect]
     Active Substance: NINTEDANIB
     Indication: Lung adenocarcinoma
     Dosage: 200 MILLIGRAM, TWO TIMES A DAY
     Route: 048
     Dates: start: 20220113
  3. VERAPAMIL [Concomitant]
     Active Substance: VERAPAMIL HYDROCHLORIDE
     Indication: Drug therapy
     Dosage: 80 MILLIGRAM, ONCE A DAY (INFUSION)
     Route: 065

REACTIONS (10)
  - Pneumonia [Fatal]
  - Pain in extremity [Fatal]
  - General physical health deterioration [Fatal]
  - Peripheral swelling [Fatal]
  - Hypoacusis [Fatal]
  - Fatigue [Fatal]
  - Leukopenia [Recovered/Resolved]
  - Mucosal infection [Not Recovered/Not Resolved]
  - Infection [Not Recovered/Not Resolved]
  - Diarrhoea [Unknown]

NARRATIVE: CASE EVENT DATE: 20220217
